FAERS Safety Report 14087801 (Version 2)
Quarter: 2018Q4

REPORT INFORMATION
  Report Type: Report from Study
  Country: JP (occurrence: JP)
  Receive Date: 20171013
  Receipt Date: 20181127
  Transmission Date: 20190204
  Serious: Yes (Hospitalization, Other)
  Sender: FDA-Public Use
  Company Number: JP-PFIZER INC-2017441756

PATIENT
  Sex: Male
  Weight: 2.23 kg

DRUGS (3)
  1. RIZE [Suspect]
     Active Substance: CLOTIAZEPAM
     Indication: ANXIETY
     Dosage: 15 MG, UNK
     Route: 064
  2. LANDSEN [Suspect]
     Active Substance: CLONAZEPAM
     Dosage: 1.5 MG, UNK
     Route: 064
  3. WYPAX [Suspect]
     Active Substance: LORAZEPAM
     Indication: ANXIETY
     Dosage: 1.5 MG, UNK
     Route: 064

REACTIONS (3)
  - Drug withdrawal syndrome neonatal [Recovered/Resolved]
  - Maternal exposure during pregnancy [Unknown]
  - Apnoeic attack [Recovered/Resolved]
